FAERS Safety Report 24435766 (Version 3)
Quarter: 2025Q1

REPORT INFORMATION
  Report Type: Report from Study
  Country: US (occurrence: US)
  Receive Date: 20241015
  Receipt Date: 20250317
  Transmission Date: 20250408
  Serious: Yes (Other)
  Sender: UCB
  Company Number: US-UCBSA-2024051850

PATIENT
  Sex: Female
  Weight: 30.7 kg

DRUGS (1)
  1. FINTEPLA [Suspect]
     Active Substance: FENFLURAMINE
     Indication: Lennox-Gastaut syndrome
     Dosage: 4.8 MILLILITER, 2X/DAY (BID)
     Dates: start: 202408

REACTIONS (2)
  - Urinary retention [Recovered/Resolved]
  - Bladder catheterisation [Not Recovered/Not Resolved]

NARRATIVE: CASE EVENT DATE: 20240101
